FAERS Safety Report 14039261 (Version 5)
Quarter: 2018Q1

REPORT INFORMATION
  Report Type: Report from Study
  Country: ES (occurrence: ES)
  Receive Date: 20171004
  Receipt Date: 20180305
  Transmission Date: 20180508
  Serious: Yes (Other)
  Sender: FDA-Public Use
  Company Number: ES-AMGEN-ESPSL2017147150

PATIENT
  Age: 64 Year
  Sex: Female

DRUGS (5)
  1. URBASON [Concomitant]
     Active Substance: METHYLPREDNISOLONE
     Dosage: UNK
  2. NOLOTIL (METAMIZOLE\PROPOXYPHENE) [Concomitant]
     Active Substance: METAMIZOLE\PROPOXYPHENE
     Dosage: UNK
  3. NPLATE [Suspect]
     Active Substance: ROMIPLOSTIM
     Dosage: UNK
     Route: 065
  4. NPLATE [Suspect]
     Active Substance: ROMIPLOSTIM
     Indication: THROMBOCYTOPENIC PURPURA
     Dosage: 250 MUG, QWK
     Route: 065
  5. DOLQUINE [Concomitant]
     Active Substance: HYDROXYCHLOROQUINE SULFATE

REACTIONS (1)
  - Pain [Not Recovered/Not Resolved]
